FAERS Safety Report 23319170 (Version 2)
Quarter: 2024Q1

REPORT INFORMATION
  Report Type: Spontaneous
  Country: CA (occurrence: CA)
  Receive Date: 20231220
  Receipt Date: 20240116
  Transmission Date: 20240409
  Serious: Yes (Other)
  Sender: FDA-Public Use
  Company Number: CA-CELLTRION INC.-2022CA010992

PATIENT

DRUGS (13)
  1. INFLECTRA [Suspect]
     Active Substance: INFLIXIMAB-DYYB
     Indication: Colitis ulcerative
     Dosage: 5 MG/KG, AT WEEK 0,2,6 THEN EVERY 8 WEEKS, WEEK 0 DOSE
     Route: 042
     Dates: start: 20220502
  2. INFLECTRA [Suspect]
     Active Substance: INFLIXIMAB-DYYB
     Dosage: 5 MG/KG, AT WEEK 0,2,6 THEN EVERY 8 WEEKS, WEEK 2 DOSE
     Route: 042
     Dates: start: 20220516
  3. INFLECTRA [Suspect]
     Active Substance: INFLIXIMAB-DYYB
     Dosage: 5 MG/KG, AT WEEK 0,2,6 THEN EVERY 8 WEEKS, WEEK 6 DOSE
     Route: 042
     Dates: start: 20220613, end: 20220613
  4. INFLECTRA [Suspect]
     Active Substance: INFLIXIMAB-DYYB
     Dosage: 10 MG/KG, AFTER 6 WEEKS AND 1 DAY (STAT DOSE)
     Route: 042
     Dates: start: 20220725
  5. INFLECTRA [Suspect]
     Active Substance: INFLIXIMAB-DYYB
     Dosage: 10 MG/KG (600MG) EVERY 8 WEEKS
     Route: 042
     Dates: start: 20220919
  6. INFLECTRA [Suspect]
     Active Substance: INFLIXIMAB-DYYB
     Dosage: 10 MG/KG (600MG) EVERY 8 WEEKS
     Route: 042
     Dates: start: 20230109
  7. INFLECTRA [Suspect]
     Active Substance: INFLIXIMAB-DYYB
     Dosage: 10 MG/KG (600MG) EVERY 8 WEEKS
     Route: 042
     Dates: start: 20230306
  8. INFLECTRA [Suspect]
     Active Substance: INFLIXIMAB-DYYB
     Dosage: 10 MG/KG (600MG) EVERY 8 WEEKS
     Route: 042
     Dates: start: 20231016
  9. INFLECTRA [Suspect]
     Active Substance: INFLIXIMAB-DYYB
     Dosage: 10 MG/KG (560) AFTER 8 WEEKS (PRESCRIBED WAS 4 WEEKS)
     Route: 042
     Dates: start: 20231211
  10. PREDNISONE [Concomitant]
     Active Substance: PREDNISONE
     Dosage: UNK
  11. PREDNISONE [Concomitant]
     Active Substance: PREDNISONE
     Dosage: 30 MG
     Route: 065
     Dates: start: 2022
  12. PREDNISONE [Concomitant]
     Active Substance: PREDNISONE
     Dosage: 40 MG
     Dates: start: 2022
  13. UCERIS [Concomitant]
     Active Substance: BUDESONIDE
     Dosage: UNK

REACTIONS (6)
  - Condition aggravated [Not Recovered/Not Resolved]
  - Gastrointestinal inflammation [Unknown]
  - Alopecia [Not Recovered/Not Resolved]
  - Pyrexia [Unknown]
  - Nasopharyngitis [Unknown]
  - Off label use [Unknown]

NARRATIVE: CASE EVENT DATE: 20220101
